FAERS Safety Report 8576389-9 (Version None)
Quarter: 2012Q3

REPORT INFORMATION
  Report Type: 
  Country: None (occurrence: None)
  Receive Date: 20120725
  Receipt Date: 20120710
  Transmission Date: 20120928
  Serious: Yes (Other)
  Sender: FDA-Public Use
  Company Number: FK201201975

PATIENT
  Age: 55 Year
  Sex: Female

DRUGS (4)
  1. WARFARIN SODIUM [Concomitant]
  2. LEUCOVORIN CALCIUM [Concomitant]
  3. FLUOROURACIL [Suspect]
     Indication: COLON CANCER
     Dosage: SEE IMAGE
     Route: 040
  4. OXALIPLATIN [Concomitant]

REACTIONS (7)
  - HEPATIC NEOPLASM [None]
  - INTERNATIONAL NORMALISED RATIO INCREASED [None]
  - NEOPLASM PROGRESSION [None]
  - COLORECTAL CANCER METASTATIC [None]
  - ACUTE CORONARY SYNDROME [None]
  - VENTRICULAR HYPOKINESIA [None]
  - MITRAL VALVE INCOMPETENCE [None]
